FAERS Safety Report 19990973 (Version 1)
Quarter: 2021Q4

REPORT INFORMATION
  Report Type: Report from Study
  Country: US (occurrence: US)
  Receive Date: 20211025
  Receipt Date: 20211025
  Transmission Date: 20220303
  Serious: Yes (Other)
  Sender: FDA-Public Use
  Company Number: US-BRISTOL-MYERS SQUIBB COMPANY-BMS-2021-100690

PATIENT
  Sex: Female

DRUGS (2)
  1. APIXABAN [Suspect]
     Active Substance: APIXABAN
     Indication: Pulmonary embolism
     Dosage: 10 MILLIGRAM, BID
     Route: 065
     Dates: start: 202109
  2. APIXABAN [Suspect]
     Active Substance: APIXABAN
     Dosage: 5 MILLIGRAM, BID
     Route: 065
     Dates: end: 20211009

REACTIONS (8)
  - Angina pectoris [Unknown]
  - Night sweats [Unknown]
  - Insomnia [Unknown]
  - Constipation [Unknown]
  - Tachycardia [Unknown]
  - Face oedema [Unknown]
  - Nausea [Unknown]
  - Productive cough [Unknown]

NARRATIVE: CASE EVENT DATE: 20210901
